FAERS Safety Report 7187050-X (Version None)
Quarter: 2010Q4

REPORT INFORMATION
  Report Type: 
  Country: None (occurrence: None)
  Receive Date: 20101222
  Receipt Date: 20100817
  Transmission Date: 20110411
  Serious: No
  Sender: FDA-Public Use
  Company Number: US-AMGEN-TCS420346

PATIENT

DRUGS (26)
  1. ENBREL [Suspect]
     Indication: RHEUMATOID ARTHRITIS
     Dosage: 50 MG, QWK
     Route: 058
     Dates: start: 20100121
  2. ROPINIROLE HYDROCHLORIDE [Concomitant]
     Dosage: 2 MG, BID
  3. HYDROCODONE BITARTRATE [Concomitant]
     Dosage: UNK UNK, QD
  4. CALCIUM [Concomitant]
     Dosage: 600 MG, TID
     Route: 048
  5. TEMAZEPAM [Concomitant]
     Dosage: 15 MG, QD
  6. FLUTICASONE/SALMETEROL [Concomitant]
     Dosage: UNK UNK, BID
  7. CITALOPRAM [Concomitant]
     Dosage: 40 MG, QD
  8. LORAZEPAM [Concomitant]
     Dosage: 1 MG, PRN
  9. SIMVASTATIN [Concomitant]
     Dosage: 20 MG, QD
  10. ALENDRONATE SODIUM [Concomitant]
     Dosage: 70 MG, QWK
  11. GABAPENTIN [Concomitant]
     Dosage: 100 MG, TID
  12. DEXTROPROPOXYPHENE NAPSILATE W/ ACETAMINOPHEN [Concomitant]
     Dosage: 100 MG, UNK
  13. CALCITONIN SALMON [Concomitant]
     Dosage: UNK UNK, QD
     Route: 045
  14. COLECALCIFEROL [Concomitant]
     Dosage: 1000 IU, QD
  15. TIOTROPIUM BROMIDE [Concomitant]
     Dosage: UNK UNK, QD
  16. VITAMIN B COMPLEX [Concomitant]
     Dosage: UNK UNK, QD
     Route: 048
  17. MOMETASONE FUROATE [Concomitant]
     Dosage: .1 %, BID
  18. ASCORBIC ACID [Concomitant]
     Dosage: 1000 MG, QD
  19. TRIAMCINOLONE ACETONIDE [Concomitant]
     Dosage: .025 %, BID
  20. DICLOFENAC SODIUM [Concomitant]
     Dosage: UNK UNK, UNK
  21. DICLOFENAC SODIUM/MISOPROSTOL [Concomitant]
     Dosage: 75 MG, BID
  22. OMEPRAZOLE [Concomitant]
     Dosage: 40 MG, QD
  23. PREDNISONE [Concomitant]
     Dosage: 5 MG, QD
  24. REMICADE [Concomitant]
     Dosage: UNK UNK, Q6WK
  25. TRAMADOL HYDROCHLORIDE [Concomitant]
     Dosage: 50 MG, UNK
  26. ZOLEDRONIC ACID [Concomitant]
     Dosage: UNK UNK, UNK

REACTIONS (17)
  - ARTHRALGIA [None]
  - ARTHRITIS [None]
  - BACK PAIN [None]
  - CONTUSION [None]
  - ERYTHEMA [None]
  - FIBROMYALGIA [None]
  - FUNGAL INFECTION [None]
  - INCREASED TENDENCY TO BRUISE [None]
  - JOINT RANGE OF MOTION DECREASED [None]
  - JOINT STIFFNESS [None]
  - KIDNEY INFECTION [None]
  - NODULE ON EXTREMITY [None]
  - PAIN IN EXTREMITY [None]
  - POOR QUALITY SLEEP [None]
  - SKIN LACERATION [None]
  - URINARY TRACT INFECTION [None]
  - VAGINITIS BACTERIAL [None]
